FAERS Safety Report 10765307 (Version 2)
Quarter: 2015Q1

REPORT INFORMATION
  Report Type: Spontaneous
  Country: JP (occurrence: None)
  Receive Date: 20150203
  Receipt Date: 20150302
  Transmission Date: 20150721
  Serious: No
  Sender: FDA-Public Use
  Company Number: JP2015JPN010613

PATIENT
  Sex: Male

DRUGS (14)
  1. DENOSINE (AMBIGUOUS MEDICATION) [Concomitant]
  2. VALIXA (VALGANCICLOVIR) [Concomitant]
  3. MYCOBUTIN (RIFABUTIN) [Concomitant]
  4. TENORMIN [Concomitant]
     Active Substance: ATENOLOL
  5. ZITHROMAC (AZITHROMYCIN) [Concomitant]
  6. BAYASPIRIN (ACETYLSALICYLIC ACID) [Concomitant]
  7. EPZICOM [Suspect]
     Active Substance: ABACAVIR SULFATE\LAMIVUDINE
     Indication: HIV INFECTION
     Route: 048
     Dates: start: 20120918
  8. NORVIR [Suspect]
     Active Substance: RITONAVIR
     Indication: HIV INFECTION
     Route: 048
     Dates: start: 20111109
  9. KLARICID (CLARITHROMYCIN) [Concomitant]
  10. PREZISTANAIVE [Suspect]
     Active Substance: DARUNAVIR
     Indication: HIV INFECTION
     Route: 048
     Dates: start: 20111109
  11. CLARITH (CLARITHROMYCIN) [Concomitant]
  12. SAMITREL (ATOVAQUONE) [Concomitant]
  13. PAROMOMYCIN SULFATE. [Concomitant]
     Active Substance: PAROMOMYCIN SULFATE
  14. PRAZAXA (DABIGATRAN ETEXILATE MESILATE) [Concomitant]

REACTIONS (3)
  - Renal impairment [None]
  - Hyperlipidaemia [None]
  - Blood cholesterol increased [None]

NARRATIVE: CASE EVENT DATE: 20130402
